FAERS Safety Report 8905412 (Version 1)
Quarter: 2012Q4

REPORT INFORMATION
  Report Type: 
  Country: US (occurrence: US)
  Receive Date: 20121113
  Receipt Date: 20121113
  Transmission Date: 20130627
  Serious: No
  Sender: FDA-Public Use
  Company Number: US-PFIZER INC-2012283073

PATIENT
  Age: 55 Year
  Sex: Female
  Weight: 63.49 kg

DRUGS (11)
  1. EFFEXOR XR [Suspect]
     Indication: DEPRESSION
     Dosage: 75 mg, 2x/day
     Route: 048
     Dates: start: 2012, end: 20121109
  2. EFFEXOR XR [Suspect]
     Indication: HOT FLASHES
  3. EFFEXOR XR [Suspect]
     Indication: MENOPAUSE
  4. TOPAMAX [Concomitant]
     Indication: SCAR
     Dosage: 50mg in the day and 100mg at night
  5. (ASA) ASPIRIN [Concomitant]
     Dosage: 75 mg, 1x/day
  6. NIASPAN [Concomitant]
     Dosage: 500 mg, 1x/day
  7. SINGULAIR [Concomitant]
     Dosage: 10 mg, 1x/day
  8. TAMOXIFEN [Concomitant]
     Dosage: 20 mg, 1x/day
  9. NOVOFINE INSULIN [Concomitant]
     Dosage: 5 mg, 1x/day
  10. ALPRAZOLAM [Concomitant]
     Dosage: 0.25 mg, 1x/day
  11. LISINOPRIL [Concomitant]
     Dosage: UNK, 1x/day

REACTIONS (8)
  - Withdrawal syndrome [Unknown]
  - Malaise [Unknown]
  - Dizziness [Unknown]
  - Off label use [Unknown]
  - Tinnitus [Unknown]
  - Psychomotor hyperactivity [Unknown]
  - Night sweats [Unknown]
  - Feeling abnormal [Unknown]
